FAERS Safety Report 5225607-3 (Version None)
Quarter: 2007Q1

REPORT INFORMATION
  Report Type: 
  Country: None (occurrence: None)
  Receive Date: 20061201
  Receipt Date: 20060821
  Transmission Date: 20070707
  Serious: Yes (Other)
  Sender: FDA-Public Use
  Company Number: US200608005037

PATIENT
  Age: 30 Year
  Sex: Female

DRUGS (2)
  1. CYMBALTA [Suspect]
     Dosage: SEE IMAGE
  2. ALESSE [Concomitant]

REACTIONS (3)
  - CONVULSION [None]
  - MALAISE [None]
  - URINARY TRACT INFECTION [None]
